FAERS Safety Report 10533969 (Version 1)
Quarter: 2014Q4

REPORT INFORMATION
  Report Type: Spontaneous
  Country: CN (occurrence: CN)
  Receive Date: 20141022
  Receipt Date: 20141022
  Transmission Date: 20150529
  Serious: Yes (Death, Hospitalization, Other)
  Sender: FDA-Public Use
  Company Number: CN-SA-2014SA141330

PATIENT
  Age: 21 Year
  Sex: Male
  Weight: 54 kg

DRUGS (2)
  1. CEREZYME [Suspect]
     Active Substance: IMIGLUCERASE
     Indication: GAUCHER^S DISEASE
     Route: 041
     Dates: end: 20140914
  2. CEREZYME [Suspect]
     Active Substance: IMIGLUCERASE
     Indication: GAUCHER^S DISEASE
     Dosage: DOSE:148 UNIT(S)/KILOGRAM BODYWEIGHT
     Route: 041
     Dates: start: 20140915

REACTIONS (6)
  - Platelet count decreased [Unknown]
  - Respiratory failure [Fatal]
  - Pulmonary haemorrhage [Fatal]
  - Haemorrhage [Unknown]
  - Organ failure [Unknown]
  - Splenomegaly [Unknown]
